FAERS Safety Report 5286983-9 (Version None)
Quarter: 2007Q1

REPORT INFORMATION
  Report Type: 
  Country: None (occurrence: None)
  Receive Date: 20070329
  Receipt Date: 20070314
  Transmission Date: 20070707
  Serious: Yes (Hospitalization)
  Sender: FDA-Public Use
  Company Number: GXKR2007JP02508

PATIENT
  Age: 6 Month

DRUGS (4)
  1. VALPROATE SODIUM [Suspect]
     Indication: EPILEPSY
     Dosage: 200 MG DAILY,
     Dates: start: 20030101, end: 20030301
  2. ZONISAMIDE [Suspect]
     Indication: EPILEPSY
     Dosage: 60MG, DAILY
     Dates: start: 20021201, end: 20030301
  3. PHENOBARBITAL TAB [Concomitant]
  4. ADRENOCORTICOGRAPHIC HORMONE (CORTICOTROPIN) [Concomitant]

REACTIONS (3)
  - INTERSTITIAL LUNG DISEASE [None]
  - RESPIRATORY SYNCYTIAL VIRUS INFECTION [None]
  - TACHYCARDIA [None]
